FAERS Safety Report 25212075 (Version 6)
Quarter: 2025Q4

REPORT INFORMATION
  Report Type: Spontaneous
  Country: JP (occurrence: JP)
  Receive Date: 20250418
  Receipt Date: 20251208
  Transmission Date: 20260118
  Serious: Yes (Hospitalization, Other)
  Sender: ROCHE
  Company Number: JP-CHUGAI-2025011941

PATIENT
  Age: 71 Year
  Sex: Female
  Weight: 47.1 kg

DRUGS (26)
  1. ACTEMRA [Suspect]
     Active Substance: TOCILIZUMAB
     Indication: Still^s disease
     Dosage: 400 MILLIGRAM, ONCE/2WEEKS
     Route: 042
     Dates: start: 20241114, end: 20241226
  2. ACTEMRA [Suspect]
     Active Substance: TOCILIZUMAB
     Dosage: 400 MILLIGRAM, ONCE/2WEEKS
     Route: 042
     Dates: start: 20250206, end: 20250219
  3. ACTEMRA [Suspect]
     Active Substance: TOCILIZUMAB
     Dosage: 480 MILLIGRAM, ONCE/WEEK
     Route: 042
     Dates: start: 20250220, end: 20250408
  4. PREDNISOLONE [Suspect]
     Active Substance: PREDNISOLONE
     Indication: Product used for unknown indication
     Dosage: 40MG/DAY
     Route: 048
     Dates: start: 20241001, end: 20241008
  5. PREDNISOLONE [Suspect]
     Active Substance: PREDNISOLONE
     Dosage: 30MG/DAY
     Route: 048
     Dates: start: 20241012, end: 20241023
  6. PREDNISOLONE [Suspect]
     Active Substance: PREDNISOLONE
     Dosage: 25 MILLIGRAM/DAY
     Route: 048
     Dates: start: 20241024, end: 20241106
  7. PREDNISOLONE [Suspect]
     Active Substance: PREDNISOLONE
     Dosage: 20 MILLIGRAM/DAY
     Route: 048
     Dates: start: 20241107, end: 20241120
  8. PREDNISOLONE [Suspect]
     Active Substance: PREDNISOLONE
     Dosage: 17.5MG/DAY
     Route: 048
     Dates: start: 20241121, end: 20241127
  9. PREDNISOLONE [Suspect]
     Active Substance: PREDNISOLONE
     Dosage: 12.5MG/DAY
     Route: 048
     Dates: start: 20241128, end: 20250115
  10. PREDNISOLONE [Suspect]
     Active Substance: PREDNISOLONE
     Dosage: 50MG/DAY
     Route: 048
     Dates: start: 20250116, end: 2025
  11. PREDNISOLONE [Suspect]
     Active Substance: PREDNISOLONE
     Dosage: 40MG/DAY
     Route: 048
     Dates: start: 20250219, end: 20250228
  12. PREDNISOLONE [Suspect]
     Active Substance: PREDNISOLONE
     Dosage: 30MG/DAY
     Route: 048
     Dates: start: 20250301, end: 20250317
  13. PREDNISOLONE [Suspect]
     Active Substance: PREDNISOLONE
     Dosage: 25MG/DAY
     Route: 050
     Dates: start: 20250318, end: 20250324
  14. PREDNISOLONE [Suspect]
     Active Substance: PREDNISOLONE
     Dosage: 20MG/DAY
     Route: 048
     Dates: start: 20250325
  15. TACROLIMUS [Suspect]
     Active Substance: TACROLIMUS
     Indication: Product used for unknown indication
     Dosage: 3 MG, ONCE EVERY FOUR DAYS
     Route: 048
     Dates: start: 20241012, end: 20241115
  16. NEORAL [Suspect]
     Active Substance: CYCLOSPORINE
     Indication: Product used for unknown indication
     Dosage: 150MG/DAY
     Route: 048
     Dates: end: 20250127
  17. NEORAL [Suspect]
     Active Substance: CYCLOSPORINE
     Dosage: 200MG/DAY
     Route: 048
     Dates: start: 20250128, end: 20250128
  18. NEORAL [Suspect]
     Active Substance: CYCLOSPORINE
     Dosage: 250MG/DAY
     Route: 048
     Dates: start: 20250129, end: 20250213
  19. NEORAL [Suspect]
     Active Substance: CYCLOSPORINE
     Dosage: 150MG/DAY
     Route: 048
     Dates: start: 20250214
  20. LANSOPRAZOLE [Suspect]
     Active Substance: LANSOPRAZOLE
     Indication: Product used for unknown indication
     Dosage: 15 MILLIGRAM, QD  (MORNING)
     Route: 048
     Dates: end: 20250304
  21. SULFAMETHOXAZOLE\TRIMETHOPRIM [Suspect]
     Active Substance: SULFAMETHOXAZOLE\TRIMETHOPRIM
     Indication: Product used for unknown indication
     Dosage: 1 DOSAGE FORM, TIW
     Route: 048
     Dates: end: 20250214
  22. BILASTINE [Concomitant]
     Active Substance: BILASTINE
     Dosage: 20 MG, QD (UPON WAKING)
     Route: 048
     Dates: start: 20250108, end: 20250130
  23. ATOVAQUONE [Concomitant]
     Active Substance: ATOVAQUONE
     Dosage: 1500 MILLILITER, QD (MORNING)
     Route: 048
     Dates: start: 20250220
  24. ALENDRONATE [Concomitant]
     Active Substance: ALENDRONATE SODIUM
     Dosage: 35 MILLIGRAM, ONCE/WEEK
     Route: 048
     Dates: start: 20250124
  25. ALFACALCIDOL [Concomitant]
     Active Substance: ALFACALCIDOL
     Dosage: 0.5 MICROGRAM, QD
     Route: 048
     Dates: start: 20250121
  26. FUROSEMIDE [Concomitant]
     Active Substance: FUROSEMIDE
     Dosage: 20 MILLIGRAM, BID (MORNING AND EVENING)
     Route: 048
     Dates: end: 20241228

REACTIONS (12)
  - Cytomegalovirus infection reactivation [Recovering/Resolving]
  - Thrombocytopenia [Recovering/Resolving]
  - Oral candidiasis [Recovering/Resolving]
  - Renal impairment [Recovered/Resolved]
  - Pulmonary embolism [Recovering/Resolving]
  - Deep vein thrombosis [Recovering/Resolving]
  - Still^s disease [Recovering/Resolving]
  - Constipation [Recovering/Resolving]
  - Steroid diabetes [Recovering/Resolving]
  - Hyperkalaemia [Recovered/Resolved]
  - Interstitial lung disease [Recovering/Resolving]
  - Cardiac failure congestive [Recovering/Resolving]

NARRATIVE: CASE EVENT DATE: 20241217
